FAERS Safety Report 17105040 (Version 1)
Quarter: 2019Q4

REPORT INFORMATION
  Report Type: Spontaneous
  Country: CN (occurrence: CN)
  Receive Date: 20191203
  Receipt Date: 20191203
  Transmission Date: 20200122
  Serious: Yes (Other)
  Sender: FDA-Public Use
  Company Number: CN-009507513-1911CHN011572

PATIENT
  Age: 67 Year
  Sex: Female
  Weight: 65 kg

DRUGS (2)
  1. TIENAM (1) [Suspect]
     Active Substance: CILASTATIN SODIUM\IMIPENEM
     Indication: BACTERIAL INFECTION
     Dosage: 500 MG, QID
     Route: 041
     Dates: start: 20191113, end: 20191119
  2. SODIUM CHLORIDE. [Concomitant]
     Active Substance: SODIUM CHLORIDE
     Indication: MEDICATION DILUTION
     Dosage: 50 MILLIGRAM, QID
     Route: 041
     Dates: start: 20191113, end: 20191119

REACTIONS (1)
  - Delirium [Recovered/Resolved]

NARRATIVE: CASE EVENT DATE: 20191119
